FAERS Safety Report 6189822-7 (Version None)
Quarter: 2009Q2

REPORT INFORMATION
  Report Type: 
  Country: None (occurrence: None)
  Receive Date: 20090514
  Receipt Date: 20090505
  Transmission Date: 20091009
  Serious: Yes (Hospitalization)
  Sender: FDA-Public Use
  Company Number: PHHY2009AT17053

PATIENT
  Sex: Male
  Weight: 98 kg

DRUGS (1)
  1. ACLASTA [Suspect]
     Indication: OSTEOPOROSIS
     Dosage: UNK
     Dates: start: 20090424

REACTIONS (3)
  - CHROMATURIA [None]
  - PAIN [None]
  - PYREXIA [None]
